FAERS Safety Report 24658653 (Version 1)
Quarter: 2024Q4

REPORT INFORMATION
  Report Type: Spontaneous
  Country: CN (occurrence: CN)
  Receive Date: 20241125
  Receipt Date: 20241125
  Transmission Date: 20250115
  Serious: Yes (Death)
  Sender: ROCHE
  Company Number: CN-ROCHE-10000140362

PATIENT
  Age: 21 Year
  Sex: Female

DRUGS (1)
  1. ATEZOLIZUMAB [Suspect]
     Active Substance: ATEZOLIZUMAB
     Indication: Renal cancer
     Route: 042
     Dates: start: 20220831, end: 202301

REACTIONS (2)
  - Immune-mediated lung disease [Fatal]
  - Off label use [Unknown]
